FAERS Safety Report 7170510-5 (Version None)
Quarter: 2010Q4

REPORT INFORMATION
  Report Type: 
  Country: None (occurrence: None)
  Receive Date: 20101217
  Receipt Date: 20101203
  Transmission Date: 20110411
  Serious: Yes (Other)
  Sender: FDA-Public Use
  Company Number: PHHY2010US71517

PATIENT
  Sex: Female

DRUGS (2)
  1. TASIGNA [Suspect]
     Indication: CHRONIC MYELOID LEUKAEMIA
     Dosage: 300 MG, BID (2 150 MG TABS.)
     Route: 048
     Dates: start: 20100924
  2. TASIGNA [Suspect]
     Dosage: 3 TABS PER DAY
     Route: 048

REACTIONS (3)
  - CARDIAC DISORDER [None]
  - DRUG INEFFECTIVE [None]
  - ELECTROCARDIOGRAM QT INTERVAL ABNORMAL [None]
